FAERS Safety Report 6205739-3 (Version None)
Quarter: 2009Q2

REPORT INFORMATION
  Report Type: 
  Country: None (occurrence: None)
  Receive Date: 20090527
  Receipt Date: 20090420
  Transmission Date: 20091009
  Serious: No
  Sender: FDA-Public Use
  Company Number: US-ABBOTT-09P-163-0569370-00

PATIENT
  Sex: Male

DRUGS (12)
  1. SIMCOR [Suspect]
     Indication: BLOOD CHOLESTEROL INCREASED
     Dates: start: 20090301
  2. MVT [Concomitant]
     Indication: DRUG USE FOR UNKNOWN INDICATION
  3. CALCIUM [Concomitant]
     Indication: DRUG USE FOR UNKNOWN INDICATION
  4. GLUCOPHAGE [Concomitant]
     Indication: DRUG USE FOR UNKNOWN INDICATION
  5. SYNTHROID [Concomitant]
     Indication: DRUG USE FOR UNKNOWN INDICATION
  6. FOLIC ACID [Concomitant]
     Indication: DRUG USE FOR UNKNOWN INDICATION
  7. VITAMIN B-12 [Concomitant]
     Indication: DRUG USE FOR UNKNOWN INDICATION
     Route: 050
  8. COQ10 [Concomitant]
     Indication: DRUG USE FOR UNKNOWN INDICATION
  9. LOVAZA [Concomitant]
     Indication: DRUG USE FOR UNKNOWN INDICATION
  10. COREG [Concomitant]
     Indication: DRUG USE FOR UNKNOWN INDICATION
  11. DIOVAN [Concomitant]
     Indication: DRUG USE FOR UNKNOWN INDICATION
  12. PRENASTORIC [Concomitant]
     Indication: PROSTATIC DISORDER

REACTIONS (1)
  - MYALGIA [None]
